FAERS Safety Report 4316658-1 (Version None)
Quarter: 2004Q1

REPORT INFORMATION
  Report Type: 
  Country: None (occurrence: None)
  Receive Date: 20040311
  Receipt Date: 20040226
  Transmission Date: 20041129
  Serious: Yes (Other)
  Sender: FDA-Public Use
  Company Number: HQWYE471202MAR04

PATIENT
  Age: 87 Year
  Sex: Female
  Weight: 78.09 kg

DRUGS (11)
  1. ADVIL [Suspect]
     Indication: DEMENTIA ALZHEIMER'S TYPE
     Dosage: 1 TABLET EVERY AM, 1 TABLET EVERY AFTERNOON AND 2 TABLETS EVERY NIGHT AT BEDTIME, ORAL
     Route: 048
     Dates: start: 20030401
  2. ADVIL [Suspect]
     Indication: PAIN
     Dosage: 1 TABLET EVERY AM, 1 TABLET EVERY AFTERNOON AND 2 TABLETS EVERY NIGHT AT BEDTIME, ORAL
     Route: 048
     Dates: start: 20030401
  3. DITROPAN XL (OXYBUTYNIN) [Concomitant]
  4. ARICEPT [Concomitant]
  5. PLAVIX [Concomitant]
  6. PERSANTINE [Concomitant]
  7. HALOPERIDOL [Concomitant]
  8. VITAMIN E [Concomitant]
  9. CEPHALEXIN [Concomitant]
  10. ANTIVERT [Concomitant]
  11. UNKNOWN (UNKNOWN) [Concomitant]

REACTIONS (3)
  - PERICARDIAL EFFUSION [None]
  - PLEURAL EFFUSION [None]
  - UNEXPECTED THERAPEUTIC DRUG EFFECT [None]
